FAERS Safety Report 21617092 (Version 2)
Quarter: 2022Q4

REPORT INFORMATION
  Report Type: Spontaneous
  Country: US (occurrence: US)
  Receive Date: 20221118
  Receipt Date: 20221228
  Transmission Date: 20230112
  Serious: Yes (Other)
  Sender: FDA-Public Use
  Company Number: US-BAUSCH-BL-2022-025358

PATIENT
  Age: 74 Year
  Sex: Female

DRUGS (2)
  1. ZYCLARA [Suspect]
     Active Substance: IMIQUIMOD
     Indication: Skin cancer
     Route: 061
  2. ZYCLARA [Suspect]
     Active Substance: IMIQUIMOD
     Indication: Product use in unapproved indication

REACTIONS (5)
  - Hepatotoxicity [Unknown]
  - Nephropathy toxic [Unknown]
  - Peripheral swelling [Recovered/Resolved]
  - Joint swelling [Recovered/Resolved]
  - Product use in unapproved indication [Unknown]
